FAERS Safety Report 7496343-8 (Version None)
Quarter: 2011Q2

REPORT INFORMATION
  Report Type: 
  Country: None (occurrence: None)
  Receive Date: 20110523
  Receipt Date: 20110513
  Transmission Date: 20111010
  Serious: Yes (Hospitalization, Other)
  Sender: FDA-Public Use
  Company Number: US-ELI_LILLY_AND_COMPANY-US201105002209

PATIENT
  Age: 66 Year
  Sex: Male

DRUGS (1)
  1. GEMZAR [Suspect]
     Indication: RETROPERITONEAL NEOPLASM
     Dosage: 1800 MG, UNKNOWN
     Route: 065
     Dates: start: 20110422, end: 20110504

REACTIONS (3)
  - BILE DUCT OBSTRUCTION [None]
  - OFF LABEL USE [None]
  - HEPATOTOXICITY [None]
